FAERS Safety Report 7808533-2 (Version None)
Quarter: 2011Q4

REPORT INFORMATION
  Report Type: 
  Country: None (occurrence: None)
  Receive Date: 20111006
  Receipt Date: 20110926
  Transmission Date: 20120403
  Serious: Yes (Life-Threatening)
  Sender: FDA-Public Use
  Company Number: 1000023117

PATIENT
  Age: 32 Year
  Sex: Female

DRUGS (1)
  1. DINOPROSTONE (DINOPROSTONE) (10 MILLIGRAM, VAGINAL INSERT) [Suspect]
     Indication: LABOUR INDUCTION
     Dosage: (10 MG, ONCE), VAGINAL
     Route: 067
     Dates: start: 20110727, end: 20110727

REACTIONS (5)
  - OLIGOHYDRAMNIOS [None]
  - PREMATURE SEPARATION OF PLACENTA [None]
  - UTERINE HYPERTONUS [None]
  - CAESAREAN SECTION [None]
  - MATERNAL EXPOSURE DURING PREGNANCY [None]
